FAERS Safety Report 5367056-3 (Version None)
Quarter: 2007Q2

REPORT INFORMATION
  Report Type: 
  Country: None (occurrence: None)
  Receive Date: 20070622
  Receipt Date: 20070615
  Transmission Date: 20071010
  Serious: Yes (Other)
  Sender: FDA-Public Use
  Company Number: B0472328A

PATIENT
  Sex: Female

DRUGS (8)
  1. VENTOLIN [Suspect]
     Indication: ASTHMA
     Dosage: 100MCG AS REQUIRED
     Route: 055
     Dates: start: 20070522, end: 20070522
  2. ADALAT [Concomitant]
  3. METFORMIN HCL [Concomitant]
  4. PARACETAMOL [Concomitant]
  5. LOSARTAN [Concomitant]
  6. BENDROFLUAZIDE [Concomitant]
  7. SENNA [Concomitant]
  8. IPRATROPIUM BROMIDE [Concomitant]
     Route: 055

REACTIONS (4)
  - ASTHMA [None]
  - BURNING SENSATION [None]
  - DYSGEUSIA [None]
  - PHARMACEUTICAL PRODUCT COMPLAINT [None]
